FAERS Safety Report 14304352 (Version 4)
Quarter: 2018Q1

REPORT INFORMATION
  Report Type: Spontaneous
  Country: FI (occurrence: FI)
  Receive Date: 20171219
  Receipt Date: 20180125
  Transmission Date: 20180509
  Serious: Yes (Life-Threatening, Hospitalization, Other)
  Sender: FDA-Public Use
  Company Number: FI-BAUSCH-BL-2017-034981

PATIENT
  Age: 61 Year
  Sex: Female

DRUGS (20)
  1. METRONIDAZOLE. [Suspect]
     Active Substance: METRONIDAZOLE
     Indication: CLOSTRIDIUM DIFFICILE INFECTION
     Route: 042
  2. VANCOMYCIN [Suspect]
     Active Substance: VANCOMYCIN
     Route: 048
  3. TIGECYCLINE. [Suspect]
     Active Substance: TIGECYCLINE
     Indication: CLOSTRIDIUM DIFFICILE INFECTION
     Route: 042
  4. TIGECYCLINE. [Suspect]
     Active Substance: TIGECYCLINE
     Route: 042
  5. T4 [Concomitant]
     Active Substance: LEVOTHYROXINE
     Indication: MYXOEDEMA
     Route: 042
  6. T4 [Concomitant]
     Active Substance: LEVOTHYROXINE
     Route: 048
  7. T3 [Concomitant]
     Active Substance: LIOTHYRONINE SODIUM
     Route: 048
  8. FIDAXOMICIN [Suspect]
     Active Substance: FIDAXOMICIN
     Indication: CLOSTRIDIUM DIFFICILE INFECTION
     Dosage: ENTERAL
     Route: 048
  9. TIGECYCLINE. [Suspect]
     Active Substance: TIGECYCLINE
     Route: 042
  10. TIGECYCLINE. [Suspect]
     Active Substance: TIGECYCLINE
     Route: 042
  11. PIPERACILLIN AND TAZOBACTAM [Suspect]
     Active Substance: PIPERACILLIN SODIUM\TAZOBACTAM SODIUM
     Indication: SEPSIS
     Route: 042
  12. PIPERACILLIN AND TAZOBACTAM [Suspect]
     Active Substance: PIPERACILLIN SODIUM\TAZOBACTAM SODIUM
     Route: 042
  13. METRONIDAZOLE. [Suspect]
     Active Substance: METRONIDAZOLE
     Indication: SEPSIS
  14. VANCOMYCIN [Suspect]
     Active Substance: VANCOMYCIN
     Route: 048
  15. FIDAXOMICIN [Suspect]
     Active Substance: FIDAXOMICIN
     Route: 048
  16. CEFUROXIME. [Suspect]
     Active Substance: CEFUROXIME
     Indication: SEPSIS
     Route: 042
  17. VANCOMYCIN [Suspect]
     Active Substance: VANCOMYCIN
     Indication: CLOSTRIDIUM DIFFICILE INFECTION
     Dosage: ENTERAL
     Route: 048
  18. FIDAXOMICIN [Suspect]
     Active Substance: FIDAXOMICIN
     Route: 048
  19. T3 [Concomitant]
     Active Substance: LIOTHYRONINE SODIUM
     Indication: MYXOEDEMA
     Route: 042
  20. T4 [Concomitant]
     Active Substance: LEVOTHYROXINE
     Route: 042

REACTIONS (2)
  - Clostridium difficile infection [Recovered/Resolved]
  - Drug ineffective [Unknown]
